FAERS Safety Report 20542626 (Version 3)
Quarter: 2022Q3

REPORT INFORMATION
  Report Type: Report from Study
  Country: JP (occurrence: JP)
  Receive Date: 20220302
  Receipt Date: 20220825
  Transmission Date: 20221027
  Serious: Yes (Other)
  Sender: FDA-Public Use
  Company Number: JP-OTSUKA-2018_003160

PATIENT
  Age: 55 Year
  Sex: Female
  Weight: 45.9 kg

DRUGS (5)
  1. TOLVAPTAN [Suspect]
     Active Substance: TOLVAPTAN
     Indication: Congenital cystic kidney disease
     Dosage: 45 MG, QD, START INTRODUCING IN THE MORNING
     Route: 048
     Dates: start: 20160309
  2. TOLVAPTAN [Suspect]
     Active Substance: TOLVAPTAN
     Dosage: 15 MG, QD, IN THE EVENING
     Route: 048
     Dates: start: 20160309
  3. TOLVAPTAN [Suspect]
     Active Substance: TOLVAPTAN
     Dosage: 15 MG, QD, START IN THE EVENING
     Route: 048
     Dates: start: 20160308, end: 20160308
  4. AZILSARTAN KAMEDOXOMIL [Concomitant]
     Active Substance: AZILSARTAN KAMEDOXOMIL
     Indication: Product used for unknown indication
     Dosage: 20 MG, QD
     Route: 048
  5. AMLODIPINE BESYLATE [Concomitant]
     Active Substance: AMLODIPINE BESYLATE
     Indication: Product used for unknown indication
     Dosage: 2.5 MG, QD
     Route: 048
     Dates: end: 20160726

REACTIONS (14)
  - Hyperkalaemia [Recovered/Resolved]
  - Cystitis [Recovering/Resolving]
  - Cystitis [Recovering/Resolving]
  - Blood creatine phosphokinase increased [Recovering/Resolving]
  - Blood urea increased [Recovering/Resolving]
  - Blood urea increased [Recovered/Resolved]
  - Blood urea increased [Recovering/Resolving]
  - Blood urea increased [Recovering/Resolving]
  - Blood creatinine increased [Recovering/Resolving]
  - Blood uric acid increased [Recovering/Resolving]
  - Blood uric acid increased [Recovering/Resolving]
  - Blood uric acid increased [Recovered/Resolved]
  - Blood uric acid increased [Not Recovered/Not Resolved]
  - Hyperuricaemia [Recovered/Resolved]

NARRATIVE: CASE EVENT DATE: 20160329
